FAERS Safety Report 5806635-3 (Version None)
Quarter: 2008Q3

REPORT INFORMATION
  Report Type: 
  Country: None (occurrence: None)
  Receive Date: 20080710
  Receipt Date: 20080707
  Transmission Date: 20090109
  Serious: Yes (Other)
  Sender: FDA-Public Use
  Company Number: PHEH2008US06014

PATIENT

DRUGS (2)
  1. TEKTURNA [Suspect]
     Dosage: 150 UNK, UNK
  2. TEKTURNA [Suspect]
     Dosage: 300 MG, UNK

REACTIONS (1)
  - HYPERTENSIVE CRISIS [None]
